FAERS Safety Report 7624486-4 (Version None)
Quarter: 2011Q3

REPORT INFORMATION
  Report Type: 
  Country: None (occurrence: None)
  Receive Date: 20110720
  Receipt Date: 20110706
  Transmission Date: 20111222
  Serious: Yes (Hospitalization)
  Sender: FDA-Public Use
  Company Number: US-BAYER-2011-044875

PATIENT
  Age: 21 Year
  Sex: Female

DRUGS (4)
  1. EPIPEN [Concomitant]
     Indication: HYPERSENSITIVITY
     Dosage: UNK
     Dates: start: 20090523, end: 20100629
  2. YAZ [Suspect]
  3. YAZ [Suspect]
     Indication: PREMENSTRUAL SYNDROME
     Dosage: UNK
     Dates: start: 20070801, end: 20100714
  4. MULTI-VITAMINS [Concomitant]

REACTIONS (2)
  - EMOTIONAL DISTRESS [None]
  - PULMONARY EMBOLISM [None]
